FAERS Safety Report 17113676 (Version 2)
Quarter: 2020Q1

REPORT INFORMATION
  Report Type: Spontaneous
  Country: US (occurrence: US)
  Receive Date: 20191205
  Receipt Date: 20200313
  Transmission Date: 20200409
  Serious: No
  Sender: FDA-Public Use
  Company Number: US-LUPIN PHARMACEUTICALS INC.-2019-05957

PATIENT
  Age: 47 Year
  Sex: Female
  Weight: 68.03 kg

DRUGS (1)
  1. QUETIAPINE FUMARATE EXTENDED-RELEASE TABLETS, 200 MG [Suspect]
     Active Substance: QUETIAPINE FUMARATE
     Indication: GENERALISED ANXIETY DISORDER
     Dosage: 200 MILLIGRAM, QD
     Route: 048
     Dates: start: 20190822

REACTIONS (2)
  - Product use in unapproved indication [Unknown]
  - Abdominal distension [Unknown]

NARRATIVE: CASE EVENT DATE: 20190822
